FAERS Safety Report 7437104-5 (Version None)
Quarter: 2011Q2

REPORT INFORMATION
  Report Type: 
  Country: None (occurrence: None)
  Receive Date: 20110426
  Receipt Date: 20110425
  Transmission Date: 20111010
  Serious: Yes (Death)
  Sender: FDA-Public Use
  Company Number: PHHY2011US03398

PATIENT
  Sex: Female

DRUGS (6)
  1. PHENOBARBITAL [Concomitant]
     Indication: CONVULSION
     Dosage: 15 MG, BID
     Route: 048
     Dates: start: 20100129
  2. DIAZEPAM [Concomitant]
     Indication: ANXIETY
     Dosage: 5 MG, BID
     Route: 048
     Dates: start: 20100129
  3. OXYBUTYNIN [Concomitant]
     Indication: INCONTINENCE
     Dosage: 5 MG, TID
     Route: 048
     Dates: start: 20100129
  4. PAXIL [Concomitant]
     Indication: DEPRESSION
     Dosage: 20 MG, QD
     Dates: start: 20100129
  5. EXTAVIA [Suspect]
     Indication: MULTIPLE SCLEROSIS
     Dosage: 0.25 MG, QOD
     Route: 058
     Dates: start: 20100329, end: 20100901
  6. PREMARIN [Concomitant]
     Dosage: 3 MG, QD
     Route: 048
     Dates: start: 20100129

REACTIONS (1)
  - URINARY TRACT INFECTION [None]
